FAERS Safety Report 24041599 (Version 1)
Quarter: 2024Q3

REPORT INFORMATION
  Report Type: Spontaneous
  Country: US (occurrence: US)
  Receive Date: 20240702
  Receipt Date: 20240702
  Transmission Date: 20241017
  Serious: No
  Sender: SAREPTA THERAPEUTICS
  Company Number: US-SAREPTA THERAPEUTICS INC.-SRP2023-004092

PATIENT
  Age: 15 Year
  Sex: Male
  Weight: 60.4 kg

DRUGS (6)
  1. EXONDYS 51 [Suspect]
     Active Substance: ETEPLIRSEN
     Indication: Duchenne muscular dystrophy
     Dosage: 1850 MILLIGRAM, WEEKLY
     Route: 042
     Dates: start: 20161106
  2. EXONDYS 51 [Suspect]
     Active Substance: ETEPLIRSEN
     Dosage: 1850 MILLIGRAM, WEEKLY
     Route: 042
     Dates: start: 20231109
  3. EXONDYS 51 [Suspect]
     Active Substance: ETEPLIRSEN
     Dosage: 1850 MILLIGRAM, WEEKLY
     Route: 042
     Dates: start: 20231117
  4. EXONDYS 51 [Suspect]
     Active Substance: ETEPLIRSEN
     Dosage: 1850 MILLIGRAM, WEEKLY
     Route: 042
     Dates: start: 20231130
  5. EXONDYS 51 [Suspect]
     Active Substance: ETEPLIRSEN
     Dosage: 1850 MILLIGRAM, WEEKLY
     Route: 042
     Dates: start: 20231211
  6. LISINOPRIL [Concomitant]
     Active Substance: LISINOPRIL
     Indication: Cardiovascular event prophylaxis
     Dosage: LOW DOSE

REACTIONS (3)
  - Catheter site scar [Unknown]
  - Device issue [Unknown]
  - Product dose omission issue [Unknown]

NARRATIVE: CASE EVENT DATE: 20231101
